FAERS Safety Report 8935195 (Version 2)
Quarter: 2013Q1

REPORT INFORMATION
  Report Type: Report from Study
  Country: AU (occurrence: AU)
  Receive Date: 20121129
  Receipt Date: 20130208
  Transmission Date: 20140127
  Serious: Yes (Other)
  Sender: FDA-Public Use
  Company Number: AU-AMGEN-AUSCT2012074701

PATIENT
  Age: 41 Year
  Sex: Female
  Weight: 72 kg

DRUGS (5)
  1. DENOSUMAB [Suspect]
     Indication: BREAST CANCER
     Dosage: 120 MG, UNK
     Route: 058
     Dates: start: 20111103, end: 20120830
  2. CALCIUM [Concomitant]
     Dosage: 600 MG, UNK
     Route: 048
     Dates: start: 20111104
  3. VITAMIN D [Concomitant]
     Dosage: 400 IU, UNK
     Route: 048
     Dates: start: 20111104
  4. TAMOXIFEN [Concomitant]
     Dosage: UNK
     Dates: start: 20120426, end: 20120828
  5. KLACID [Concomitant]
     Dosage: 250 MG, UNK
     Route: 048
     Dates: start: 20120731, end: 20120806

REACTIONS (1)
  - Foetal death [Recovered/Resolved]
